FAERS Safety Report 6000045-4 (Version None)
Quarter: 2008Q4

REPORT INFORMATION
  Report Type: 
  Country: None (occurrence: None)
  Receive Date: 20081215
  Receipt Date: 20081211
  Transmission Date: 20090506
  Serious: Yes (Hospitalization)
  Sender: FDA-Public Use
  Company Number: A0760004A

PATIENT
  Age: 71 Year
  Sex: Female

DRUGS (3)
  1. COREG [Suspect]
     Indication: HYPERTENSION
     Dosage: 6.25MG PER DAY
     Route: 048
     Dates: start: 20040101, end: 20080401
  2. COREG [Suspect]
     Route: 048
     Dates: start: 20080401
  3. UNKNOWN [Concomitant]

REACTIONS (4)
  - ATRIAL FIBRILLATION [None]
  - DYSPEPSIA [None]
  - HEART RATE INCREASED [None]
  - MALAISE [None]
